FAERS Safety Report 19415047 (Version 2)
Quarter: 2021Q2

REPORT INFORMATION
  Report Type: Report from Study
  Country: AR (occurrence: AR)
  Receive Date: 20210614
  Receipt Date: 20210630
  Transmission Date: 20210717
  Serious: Yes (Other)
  Sender: FDA-Public Use
  Company Number: NVSC2021AR125759

PATIENT
  Age: 58 Year
  Sex: Female

DRUGS (5)
  1. COSENTYX [Suspect]
     Active Substance: SECUKINUMAB
     Indication: PSORIASIS
     Dosage: 300 MG, QMO
     Route: 058
     Dates: start: 20190801
  2. CUTANIT [Concomitant]
     Indication: PRODUCT USED FOR UNKNOWN INDICATION
     Dosage: UNK
     Route: 065
  3. LOSARTAN. [Concomitant]
     Active Substance: LOSARTAN
     Indication: PRODUCT USED FOR UNKNOWN INDICATION
     Dosage: UNK (SINCE 7 ? 8 YEARS AGO)
     Route: 065
  4. COSENTYX [Suspect]
     Active Substance: SECUKINUMAB
     Indication: PSORIATIC ARTHROPATHY
     Dosage: UNK
     Route: 065
     Dates: start: 202005
  5. FUSIMED B [Concomitant]
     Indication: PRODUCT USED FOR UNKNOWN INDICATION
     Dosage: UNK
     Route: 065

REACTIONS (15)
  - Chronic obstructive pulmonary disease [Unknown]
  - Psoriasis [Not Recovered/Not Resolved]
  - Headache [Unknown]
  - Pneumonia [Unknown]
  - Oropharyngeal pain [Unknown]
  - Ageusia [Unknown]
  - Cough [Unknown]
  - Pain [Unknown]
  - Vomiting [Unknown]
  - COVID-19 [Recovered/Resolved]
  - Anosmia [Unknown]
  - Dyspnoea [Not Recovered/Not Resolved]
  - Pyrexia [Unknown]
  - Fatigue [Not Recovered/Not Resolved]
  - Diarrhoea [Unknown]

NARRATIVE: CASE EVENT DATE: 202012
